FAERS Safety Report 12675331 (Version 4)
Quarter: 2017Q3

REPORT INFORMATION
  Report Type: Spontaneous
  Country: GB (occurrence: GB)
  Receive Date: 20160822
  Receipt Date: 20170719
  Transmission Date: 20171127
  Serious: Yes (Other)
  Sender: FDA-Public Use
  Company Number: GB-009507513-1608GBR008931

PATIENT
  Age: 58 Year
  Sex: Female
  Weight: 54 kg

DRUGS (4)
  1. MOMETASONE FUROATE. [Suspect]
     Active Substance: MOMETASONE FUROATE
     Dosage: ONCE PER DAY FOR 28 DAYS, EVERY OTHER DAY FOR 28 DAYS, THEN TWICE A WEEK
     Route: 061
     Dates: start: 20160804
  2. LEVOTHYROXINE SODIUM. [Concomitant]
     Active Substance: LEVOTHYROXINE SODIUM
  3. COLIFOAM [Concomitant]
     Active Substance: HYDROCORTISONE
  4. MOMETASONE FUROATE. [Suspect]
     Active Substance: MOMETASONE FUROATE
     Indication: LICHEN SCLEROSUS
     Dosage: ONCE PER DAY FOR 28 DAYS, EVERY OTHER DAY FOR 28 DAYS, THEN TWICE A WEEK
     Route: 061
     Dates: start: 20160725, end: 20160727

REACTIONS (2)
  - Application site paraesthesia [Unknown]
  - Application site pain [Not Recovered/Not Resolved]

NARRATIVE: CASE EVENT DATE: 20160725
